FAERS Safety Report 25773639 (Version 1)
Quarter: 2025Q3

REPORT INFORMATION
  Report Type: Spontaneous
  Country: BR (occurrence: BR)
  Receive Date: 20250908
  Receipt Date: 20250908
  Transmission Date: 20251021
  Serious: Yes (Hospitalization, Other)
  Sender: BAYER HEALTHCARE PHARMACEUTICALS INC.
  Company Number: BR-BAYER-2025A114064

PATIENT
  Age: 26 Year
  Sex: Female

DRUGS (5)
  1. KYLEENA [Suspect]
     Active Substance: LEVONORGESTREL
     Indication: Contraception
     Dosage: 17.5?G/DAY
     Route: 015
     Dates: start: 20230503, end: 20250806
  2. VENLAFAXINE HYDROCHLORIDE [Concomitant]
     Active Substance: VENLAFAXINE HYDROCHLORIDE
     Indication: Anxiety
     Dates: start: 20201001
  3. DIMENHYDRINATE [Concomitant]
     Active Substance: DIMENHYDRINATE
  4. TRAMADOL [Concomitant]
     Active Substance: TRAMADOL
  5. DIPYRONE [Concomitant]
     Active Substance: DIPYRONE

REACTIONS (6)
  - Ectopic pregnancy with contraceptive device [Recovering/Resolving]
  - Abdominal pain lower [Recovered/Resolved]
  - Haematosalpinx [Recovered/Resolved]
  - Ovarian cyst [None]
  - Adnexa uteri cyst [None]
  - Drug ineffective [None]

NARRATIVE: CASE EVENT DATE: 20250801
